FAERS Safety Report 24080712 (Version 1)
Quarter: 2024Q3

REPORT INFORMATION
  Report Type: Spontaneous
  Country: RU (occurrence: RU)
  Receive Date: 20240711
  Receipt Date: 20240711
  Transmission Date: 20241017
  Serious: Yes (Other)
  Sender: AMERICAN REGENT
  Company Number: RU-AMERICAN REGENT INC-2024002636

PATIENT
  Age: 30 Year
  Sex: Female
  Weight: 42 kg

DRUGS (1)
  1. FERINJECT [Suspect]
     Active Substance: FERRIC CARBOXYMALTOSE
     Indication: Iron deficiency anaemia
     Dosage: DILUTION: 250 ML IN 0.9% NACL (MEDIUM) (1000 MG, 1 IN 1 TOTAL)
     Dates: start: 20240626, end: 20240626

REACTIONS (1)
  - Bronchospasm [Recovered/Resolved]

NARRATIVE: CASE EVENT DATE: 20240626
